FAERS Safety Report 4423872-3 (Version None)
Quarter: 2004Q3

REPORT INFORMATION
  Report Type: 
  Country: None (occurrence: None)
  Receive Date: 20040715
  Receipt Date: 20040205
  Transmission Date: 20050211
  Serious: Yes (Other)
  Sender: FDA-Public Use
  Company Number: 2004198031US

PATIENT
  Age: 87 Year
  Sex: Female

DRUGS (6)
  1. CELEBREX [Suspect]
     Indication: OSTEOARTHRITIS
     Dosage: 500 MG, BID
     Dates: end: 20030101
  2. SYNTHROID [Concomitant]
  3. LEXAPRO [Concomitant]
  4. MSN POWDER [Concomitant]
  5. ASPIRIN [Concomitant]
  6. GLUCOSAMINE W/CHONDROITIN SULFATES (MANGANESE) [Concomitant]

REACTIONS (1)
  - GASTRIC ULCER HAEMORRHAGE [None]
